FAERS Safety Report 17335648 (Version 1)
Quarter: 2020Q1

REPORT INFORMATION
  Report Type: Spontaneous
  Country: US (occurrence: US)
  Receive Date: 20200128
  Receipt Date: 20200128
  Transmission Date: 20200409
  Serious: Yes (Hospitalization)
  Sender: FDA-Public Use
  Company Number: US-ACTELION-A-NJ2020-200893

PATIENT
  Age: 67 Year
  Sex: Female

DRUGS (15)
  1. HYDRALAZINE [Concomitant]
     Active Substance: HYDRALAZINE HYDROCHLORIDE
     Dosage: 50 MG, TID
  2. ASPIRIN. [Concomitant]
     Active Substance: ASPIRIN
     Dosage: 81 MG, QD
  3. VITAMIN D [Concomitant]
     Active Substance: VITAMIN D NOS
     Dosage: 4000 MG, QD
  4. POTASSIUM [Concomitant]
     Active Substance: POTASSIUM
     Dosage: 10 MEQ, QD
  5. OPSUMIT [Suspect]
     Active Substance: MACITENTAN
     Indication: PULMONARY ARTERIAL HYPERTENSION
     Dosage: 10 MG, QD
     Route: 048
     Dates: start: 20191229
  6. MAGNESIUM OXIDE. [Concomitant]
     Active Substance: MAGNESIUM OXIDE
     Dosage: 40 MG, BID
  7. LOSARTAN. [Concomitant]
     Active Substance: LOSARTAN
     Dosage: 100 MG, QD
  8. SPIRONOLACTON [Concomitant]
     Active Substance: SPIRONOLACTONE
     Dosage: 25 MG, QD
  9. SILDENAFIL. [Concomitant]
     Active Substance: SILDENAFIL
     Dosage: 20 MG, TID
  10. NABUMETONE. [Concomitant]
     Active Substance: NABUMETONE
     Dosage: 500 MG, BID
  11. ACETAMINOPHEN. [Concomitant]
     Active Substance: ACETAMINOPHEN
     Dosage: 1000 MG, TID
  12. LASIX [Concomitant]
     Active Substance: FUROSEMIDE
     Dosage: 40 MG, QD
  13. DOFETILIDE. [Concomitant]
     Active Substance: DOFETILIDE
     Dosage: 250 MG, BID
  14. ZONISAMIDE. [Concomitant]
     Active Substance: ZONISAMIDE
     Dosage: UNK MG, QD
  15. CLONIDINE. [Concomitant]
     Active Substance: CLONIDINE
     Dosage: 0.1 MG, QD

REACTIONS (16)
  - Adverse event [Unknown]
  - Tinnitus [Not Recovered/Not Resolved]
  - Oropharyngeal pain [Not Recovered/Not Resolved]
  - Restlessness [Not Recovered/Not Resolved]
  - Insomnia [Not Recovered/Not Resolved]
  - Heart rate increased [Not Recovered/Not Resolved]
  - Tremor [Unknown]
  - Skin abrasion [Not Recovered/Not Resolved]
  - Pruritus [Not Recovered/Not Resolved]
  - Atrial fibrillation [Unknown]
  - Decreased appetite [Unknown]
  - Nasal congestion [Not Recovered/Not Resolved]
  - Nausea [Unknown]
  - Feeling cold [Not Recovered/Not Resolved]
  - Hyperhidrosis [Not Recovered/Not Resolved]
  - Abdominal pain lower [Not Recovered/Not Resolved]

NARRATIVE: CASE EVENT DATE: 201912
